FAERS Safety Report 6133610-4 (Version None)
Quarter: 2009Q1

REPORT INFORMATION
  Report Type: 
  Country: None (occurrence: None)
  Receive Date: 20090326
  Receipt Date: 20090319
  Transmission Date: 20090719
  Serious: Yes (Hospitalization)
  Sender: FDA-Public Use
  Company Number: DE-MERCK-0903DEU00173

PATIENT
  Age: 50 Year
  Sex: Female
  Weight: 47 kg

DRUGS (9)
  1. FOSAMAX [Suspect]
     Indication: OSTEOPOROSIS
     Route: 048
     Dates: start: 20080401, end: 20080819
  2. TACROLIMUS [Suspect]
     Indication: LIVER TRANSPLANT
     Route: 048
     Dates: start: 20080201, end: 20080910
  3. MYCOPHENOLATE MOFETIL [Concomitant]
     Indication: LIVER TRANSPLANT
     Route: 048
     Dates: start: 20080201
  4. PREDNISONE [Concomitant]
     Indication: LIVER TRANSPLANT
     Route: 048
     Dates: start: 20080201
  5. METOCLOPRAMIDE HYDROCHLORIDE [Concomitant]
     Indication: NAUSEA
     Route: 048
     Dates: start: 20080401, end: 20080911
  6. PANTOPRAZOLE SODIUM [Concomitant]
     Indication: PROPHYLAXIS AGAINST GASTROINTESTINAL ULCER
     Route: 048
     Dates: start: 20080201
  7. CLOPIDOGREL BISULFATE [Concomitant]
     Indication: THROMBOSIS PROPHYLAXIS
     Route: 048
     Dates: start: 20080201
  8. URSODIOL [Concomitant]
     Indication: LIVER TRANSPLANT
     Route: 048
     Dates: start: 20080201
  9. CALCIUM CARBONATE [Concomitant]
     Indication: FRACTURE
     Route: 065
     Dates: end: 20080401

REACTIONS (3)
  - HYPERCALCAEMIA [None]
  - NAUSEA [None]
  - VOMITING [None]
